FAERS Safety Report 10205503 (Version 2)
Quarter: 2014Q2

REPORT INFORMATION
  Report Type: Spontaneous
  Country: US (occurrence: US)
  Receive Date: 20140529
  Receipt Date: 20140605
  Transmission Date: 20141212
  Serious: No
  Sender: FDA-Public Use
  Company Number: US-009507513-1405USA013487

PATIENT
  Sex: 0

DRUGS (5)
  1. PEGINTRON [Suspect]
     Indication: CHRONIC HEPATITIS C
     Route: 065
  2. REBETOL [Suspect]
     Indication: CHRONIC HEPATITIS C
     Route: 065
  3. VICTRELIS [Suspect]
     Indication: CHRONIC HEPATITIS C
     Route: 065
  4. TELAPREVIR [Suspect]
     Indication: CHRONIC HEPATITIS C
     Route: 065
  5. TELAPREVIR [Suspect]
     Indication: CHRONIC HEPATITIS C

REACTIONS (7)
  - Psychiatric symptom [Unknown]
  - Decreased appetite [Unknown]
  - Neutropenia [Unknown]
  - Anaemia [Unknown]
  - Rash [Unknown]
  - Nausea [Unknown]
  - Vomiting [Unknown]
